FAERS Safety Report 4763636-4 (Version None)
Quarter: 2005Q3

REPORT INFORMATION
  Report Type: 
  Country: None (occurrence: None)
  Receive Date: 20050901
  Receipt Date: 20050725
  Transmission Date: 20060218
  Serious: Yes (Hospitalization)
  Sender: FDA-Public Use
  Company Number: EGEL00205002435

PATIENT
  Age: 68 Year
  Sex: Female

DRUGS (1)
  1. ESTRADIOL [Suspect]
     Indication: ILL-DEFINED DISORDER
     Dosage: DAILY

REACTIONS (1)
  - ENDOMETRIAL CANCER [None]
